FAERS Safety Report 9933265 (Version 2)
Quarter: 2014Q1

REPORT INFORMATION
  Report Type: Report from Study
  Country: US (occurrence: US)
  Receive Date: 20140228
  Receipt Date: 20140228
  Transmission Date: 20141002
  Serious: No
  Sender: FDA-Public Use
  Company Number: US-MYLANLABS-2013S1002703

PATIENT
  Age: 22 Year
  Sex: Female

DRUGS (1)
  1. AMNESTEEM CAPSULES [Suspect]
     Indication: ACNE
     Route: 048

REACTIONS (3)
  - Drug dispensing error [Recovered/Resolved]
  - Treatment noncompliance [Recovered/Resolved]
  - No adverse event [Recovered/Resolved]
